FAERS Safety Report 25953388 (Version 1)
Quarter: 2025Q4

REPORT INFORMATION
  Report Type: Spontaneous
  Country: JP (occurrence: JP)
  Receive Date: 20251023
  Receipt Date: 20251023
  Transmission Date: 20260118
  Serious: Yes (Other)
  Sender: OTSUKA
  Company Number: JP-MMM-Otsuka-MEX10BH2

PATIENT
  Age: 86 Year
  Sex: Male

DRUGS (4)
  1. REXULTI [Suspect]
     Active Substance: BREXPIPRAZOLE
     Indication: Dementia
     Dosage: 2 MG/DAY
  2. REXULTI [Suspect]
     Active Substance: BREXPIPRAZOLE
     Indication: Neuropsychological symptoms
  3. REXULTI [Suspect]
     Active Substance: BREXPIPRAZOLE
     Indication: Hallucination
  4. REXULTI [Suspect]
     Active Substance: BREXPIPRAZOLE
     Indication: Delirium

REACTIONS (2)
  - Pneumonia aspiration [Unknown]
  - Product use in unapproved indication [Unknown]
